FAERS Safety Report 12145295 (Version 1)
Quarter: 2016Q1

REPORT INFORMATION
  Report Type: Spontaneous
  Country: US (occurrence: None)
  Receive Date: 20160303
  Receipt Date: 20160303
  Transmission Date: 20160526
  Serious: No
  Sender: FDA-Public Use
  Company Number: None

PATIENT
  Age: 58 Year
  Sex: Male

DRUGS (20)
  1. CLOTRIMAZOLE CREAM [Concomitant]
     Active Substance: CLOTRIMAZOLE
  2. CYPROHEPTADINE. [Concomitant]
     Active Substance: CYPROHEPTADINE
  3. VITAMIN B COMPLEX [Concomitant]
     Active Substance: CYANOCOBALAMIN\DEXPANTHENOL\NIACINAMIDE\PYRIDOXINE HYDROCHLORIDE\RIBOFLAVIN 5^-PHOSPHATE SODIUM\THIAMINE HYDROCHLORIDE\VITAMIN B COMPLEX
  4. ALLOPURINOL. [Concomitant]
     Active Substance: ALLOPURINOL
  5. AFINITOR [Suspect]
     Active Substance: EVEROLIMUS
     Indication: RENAL CANCER
     Route: 048
     Dates: start: 20151021
  6. LEVOTHYROXINE. [Concomitant]
     Active Substance: LEVOTHYROXINE
  7. CYCLOBENZAPRINE [Concomitant]
     Active Substance: CYCLOBENZAPRINE
  8. DICLOFENAC GEL [Concomitant]
  9. ASPIRIN. [Concomitant]
     Active Substance: ASPIRIN
  10. AMOXICILLIN. [Concomitant]
     Active Substance: AMOXICILLIN
  11. AMITIZA [Concomitant]
     Active Substance: LUBIPROSTONE
  12. BREO ELLIPTA [Concomitant]
     Active Substance: FLUTICASONE FUROATE\VILANTEROL TRIFENATATE
  13. OXYCODONE [Concomitant]
     Active Substance: OXYCODONE
  14. PENICILLIN VK [Concomitant]
     Active Substance: PENICILLIN V POTASSIUM
  15. PROAIR HFA [Concomitant]
     Active Substance: ALBUTEROL SULFATE
  16. FISH OIL [Concomitant]
     Active Substance: FISH OIL
  17. TAMSULOSIN [Concomitant]
     Active Substance: TAMSULOSIN
  18. ATENOLOL. [Concomitant]
     Active Substance: ATENOLOL
  19. CENTRUM SILVER [Concomitant]
     Active Substance: MINERALS\VITAMINS
  20. OMEPRAZOLE. [Concomitant]
     Active Substance: OMEPRAZOLE

REACTIONS (6)
  - Fatigue [None]
  - Total lung capacity decreased [None]
  - Red blood cell count decreased [None]
  - Blood glucose increased [None]
  - Back pain [None]
  - Asthenia [None]

NARRATIVE: CASE EVENT DATE: 201601
